FAERS Safety Report 7046453-4 (Version None)
Quarter: 2010Q4

REPORT INFORMATION
  Report Type: 
  Country: None (occurrence: None)
  Receive Date: 20101014
  Receipt Date: 20101011
  Transmission Date: 20110411
  Serious: No
  Sender: FDA-Public Use
  Company Number: US-PFIZER INC-2008013277

PATIENT
  Sex: Male
  Weight: 79.545 kg

DRUGS (1)
  1. CHANTIX [Suspect]
     Dosage: UNK
     Dates: start: 20080101

REACTIONS (4)
  - ANXIETY [None]
  - INCREASED APPETITE [None]
  - IRRITABILITY [None]
  - NERVOUSNESS [None]
